FAERS Safety Report 7510504-0 (Version None)
Quarter: 2011Q2

REPORT INFORMATION
  Report Type: 
  Country: None (occurrence: None)
  Receive Date: 20110529
  Receipt Date: 20110516
  Transmission Date: 20111010
  Serious: Yes (Hospitalization)
  Sender: FDA-Public Use
  Company Number: IT-BRISTOL-MYERS SQUIBB COMPANY-15564644

PATIENT
  Age: 43 Year
  Sex: Male

DRUGS (4)
  1. ATAZANAVIR [Suspect]
     Indication: HIV INFECTION
  2. TENOFOVIR DISOPROXIL FUMARATE [Interacting]
     Indication: HIV INFECTION
  3. LAMIVUDINE [Interacting]
     Indication: HIV INFECTION
  4. RITONAVIR [Interacting]
     Indication: HIV INFECTION

REACTIONS (3)
  - DRUG LEVEL INCREASED [None]
  - CALCULUS URINARY [None]
  - DRUG INTERACTION [None]
